FAERS Safety Report 8538582-0 (Version None)
Quarter: 2012Q3

REPORT INFORMATION
  Report Type: 
  Country: None (occurrence: None)
  Receive Date: 20120718
  Receipt Date: 20120718
  Transmission Date: 20120928
  Serious: Yes (Other)
  Sender: FDA-Public Use
  Company Number: None

PATIENT
  Age: 45 Year
  Sex: Female

DRUGS (1)
  1. CEFUROXIME SODIUM [Suspect]
     Indication: EAR INFECTION
     Dosage: 500 MG TWICE DAILY ORAL
     Route: 048
     Dates: start: 20120627, end: 20120703

REACTIONS (2)
  - FATIGUE [None]
  - DIARRHOEA [None]
